FAERS Safety Report 6883720-9 (Version None)
Quarter: 2010Q3

REPORT INFORMATION
  Report Type: 
  Country: None (occurrence: None)
  Receive Date: 20100729
  Receipt Date: 20100726
  Transmission Date: 20110219
  Serious: Yes (Congenital Anomaly)
  Sender: FDA-Public Use
  Company Number: A0872553A

PATIENT
  Sex: Male

DRUGS (24)
  1. COMBIVIR [Suspect]
     Indication: HIV INFECTION
     Dates: start: 20060216, end: 20060322
  2. VIDEX [Suspect]
     Indication: HIV INFECTION
     Dates: start: 20060117, end: 20060131
  3. KALETRA [Suspect]
     Indication: HIV INFECTION
     Dates: start: 20060216, end: 20060407
  4. VIRACEPT [Suspect]
     Indication: HIV INFECTION
     Dates: start: 20060309, end: 20060322
  5. PARACETAMOL [Concomitant]
  6. POTASSIUM CHLORIDE [Concomitant]
  7. RANITIDINE [Concomitant]
  8. TERBUTALINE SULFATE [Concomitant]
  9. TRAMADOL HYDROCHLORIDE [Concomitant]
  10. ACYCLOVIR [Concomitant]
  11. AMPHOTERICIN B [Concomitant]
  12. BACTRIM [Concomitant]
  13. BETAMETHASONE [Concomitant]
  14. CEFEPIME [Concomitant]
  15. CEFTRIAXONE [Concomitant]
  16. DEXAMETHASONE [Concomitant]
  17. DIAZEPAM [Concomitant]
  18. FERROUS SULFATE [Concomitant]
  19. HYOSCINE HBR HYT [Concomitant]
  20. METAMIZOLE SODIUM [Concomitant]
  21. METOCLOPRAMIDE [Concomitant]
  22. NEOMYCIN [Concomitant]
  23. NYSTATIN [Concomitant]
  24. ONDANSETRON [Concomitant]

REACTIONS (2)
  - DRUG EXPOSURE DURING PREGNANCY [None]
  - POLYDACTYLY [None]
